FAERS Safety Report 21685724 (Version 1)
Quarter: 2022Q4

REPORT INFORMATION
  Report Type: Report from Study
  Country: US (occurrence: US)
  Receive Date: 20221206
  Receipt Date: 20221206
  Transmission Date: 20230113
  Serious: No
  Sender: FDA-Public Use
  Company Number: US-ABBVIE-4177971

PATIENT
  Age: 62 Year

DRUGS (2)
  1. HUMIRA [Suspect]
     Active Substance: ADALIMUMAB
     Indication: Rheumatoid arthritis
     Route: 058
     Dates: start: 2022, end: 202210
  2. Covid-19 vaccination Pfizer/BioNTech [Concomitant]
     Indication: COVID-19 immunisation
     Dosage: 1 IN ONCE, COVID VACCINE DOSE
     Route: 030

REACTIONS (1)
  - Wound infection [Recovered/Resolved]

NARRATIVE: CASE EVENT DATE: 20221001
